FAERS Safety Report 11776466 (Version 4)
Quarter: 2016Q1

REPORT INFORMATION
  Report Type: Spontaneous
  Country: CA (occurrence: CA)
  Receive Date: 20151125
  Receipt Date: 20160324
  Transmission Date: 20160525
  Serious: Yes (Hospitalization)
  Sender: FDA-Public Use
  Company Number: CA-ROCHE-1666178

PATIENT
  Age: 69 Year
  Sex: Female

DRUGS (7)
  1. XOLAIR [Suspect]
     Active Substance: OMALIZUMAB
     Route: 058
     Dates: start: 20160307
  2. SEEBRI [Suspect]
     Active Substance: GLYCOPYRRONIUM
     Indication: ASTHMA
     Route: 055
     Dates: start: 201504
  3. SEEBRI [Suspect]
     Active Substance: GLYCOPYRRONIUM
     Dosage: 1 DF PUFF
     Route: 055
  4. CORTISONE [Concomitant]
     Active Substance: CORTISONE\HYDROCORTISONE
     Route: 065
  5. XOLAIR [Suspect]
     Active Substance: OMALIZUMAB
     Route: 058
     Dates: start: 20151116
  6. XOLAIR [Suspect]
     Active Substance: OMALIZUMAB
     Indication: ASTHMA
     Route: 058
     Dates: start: 20151019
  7. SYMBICORT [Concomitant]
     Active Substance: BUDESONIDE\FORMOTEROL FUMARATE DIHYDRATE

REACTIONS (5)
  - Pneumonia [Recovering/Resolving]
  - Dry mouth [Unknown]
  - Blood pressure decreased [Recovering/Resolving]
  - Headache [Unknown]
  - Pain in extremity [Unknown]

NARRATIVE: CASE EVENT DATE: 20151031
